FAERS Safety Report 9769813 (Version 2)
Quarter: 2013Q4

REPORT INFORMATION
  Report Type: Spontaneous
  Country: US (occurrence: US)
  Receive Date: 20131218
  Receipt Date: 20131218
  Transmission Date: 20140711
  Serious: No
  Sender: FDA-Public Use
  Company Number: US-VERTEX PHARMACEUTICALS INC-AE-2011-000440

PATIENT
  Age: 59 Year
  Sex: Female

DRUGS (7)
  1. INCIVEK [Suspect]
     Indication: HEPATITIS C
     Route: 048
     Dates: start: 20110630
  2. INTERFERON [Concomitant]
     Indication: HEPATITIS C
     Dates: start: 20110630
  3. RIBAVIRIN [Concomitant]
     Indication: HEPATITIS C
     Dates: start: 20110630
  4. PAXIL [Concomitant]
     Route: 048
  5. SUBOXONE [Concomitant]
     Indication: PAIN
     Route: 048
  6. ZOFRAN [Concomitant]
     Indication: NAUSEA
     Route: 048
  7. TYLENOL [Concomitant]
     Indication: PAIN
     Route: 048

REACTIONS (1)
  - Rash [Not Recovered/Not Resolved]
